FAERS Safety Report 4930044-2 (Version None)
Quarter: 2006Q1

REPORT INFORMATION
  Report Type: 
  Country: None (occurrence: None)
  Receive Date: 20060228
  Receipt Date: 20060228
  Transmission Date: 20060701
  Serious: Yes (Other)
  Sender: FDA-Public Use
  Company Number: None

PATIENT
  Sex: Male
  Weight: 44.9061 kg

DRUGS (2)
  1. FENTANYL [Suspect]
     Indication: MYELOPATHY
     Dosage: 10 PATCHES Q 72 HRS TOPICAL
     Route: 061
     Dates: start: 20050304
  2. FENTANYL [Suspect]
     Indication: PROSTATE CANCER
     Dosage: 10 PATCHES Q 72 HRS TOPICAL
     Route: 061
     Dates: start: 20050304

REACTIONS (2)
  - PRURITUS [None]
  - RASH [None]
